FAERS Safety Report 7917575-8 (Version None)
Quarter: 2011Q4

REPORT INFORMATION
  Report Type: 
  Country: None (occurrence: None)
  Receive Date: 20111114
  Receipt Date: 20111027
  Transmission Date: 20120403
  Serious: Yes (Life-Threatening, Hospitalization)
  Sender: FDA-Public Use
  Company Number: DSA_48064_2011

PATIENT
  Age: 68 Year
  Sex: Female

DRUGS (9)
  1. METOPROLOL TARTRATE [Concomitant]
  2. SUSCARD [Concomitant]
  3. IMDUR [Concomitant]
  4. PANTOPRAZOLE SODIUM [Suspect]
     Indication: PRODUCT USED FOR UNKNOWN INDICATION
     Dosage: (DF ORAL)
     Route: 048
     Dates: end: 20110717
  5. AMLODIPINE [Concomitant]
  6. KETOGAN /00129101/ [Concomitant]
  7. MOVICOL /01625101/ [Concomitant]
  8. TRAMADOL HCL [Concomitant]
  9. ENALAPRIL MALEATE [Suspect]
     Indication: ESSENTIAL HYPERTENSION
     Dosage: (DF ORAL)
     Route: 048
     Dates: end: 20110717

REACTIONS (1)
  - ANGIOEDEMA [None]
